FAERS Safety Report 19401128 (Version 2)
Quarter: 2021Q3

REPORT INFORMATION
  Report Type: Spontaneous
  Country: US (occurrence: US)
  Receive Date: 20210610
  Receipt Date: 20210805
  Transmission Date: 20211014
  Serious: Yes (Other)
  Sender: FDA-Public Use
  Company Number: US-BEXIMCO-2021BEX00027

PATIENT
  Sex: Female

DRUGS (1)
  1. NADOLOL. [Suspect]
     Active Substance: NADOLOL
     Route: 015

REACTIONS (5)
  - Neonatal hypoxia [Recovered/Resolved]
  - Hypoglycaemia [Recovered/Resolved]
  - Bradycardia [Unknown]
  - Small for dates baby [Unknown]
  - Foetal exposure during pregnancy [Recovered/Resolved]
